FAERS Safety Report 8941704 (Version 1)
Quarter: 2012Q4

REPORT INFORMATION
  Report Type: 
  Country: LB (occurrence: LB)
  Receive Date: 20121203
  Receipt Date: 20121203
  Transmission Date: 20130627
  Serious: Yes (Other)
  Sender: FDA-Public Use
  Company Number: LB-BRISTOL-MYERS SQUIBB COMPANY-17156837

PATIENT
  Age: 82 Year
  Sex: Male

DRUGS (3)
  1. COAPROVEL [Suspect]
     Indication: DRUG THERAPY
     Dosage: 1df=300/12.5 units NOS .Intial dose-150/12.5 units NOS
     Route: 048
  2. XATRAL [Concomitant]
     Route: 048
  3. MONO-TILDIEM [Concomitant]
     Route: 048

REACTIONS (2)
  - Loss of consciousness [Unknown]
  - Head injury [Unknown]
